FAERS Safety Report 5048994-8 (Version None)
Quarter: 2006Q3

REPORT INFORMATION
  Report Type: 
  Country: None (occurrence: None)
  Receive Date: 20060712
  Receipt Date: 20051116
  Transmission Date: 20061208
  Serious: No
  Sender: FDA-Public Use
  Company Number: US-GLAXOSMITHKLINE-A0582577A

PATIENT
  Age: 52 Year
  Sex: Female

DRUGS (4)
  1. IMITREX [Suspect]
     Indication: MIGRAINE
     Route: 048
  2. BIRTH CONTROL PILLS [Concomitant]
  3. ZOLOFT [Concomitant]
  4. PRENATAL VITAMINS [Concomitant]

REACTIONS (4)
  - CRYING [None]
  - DIZZINESS [None]
  - DRUG INEFFECTIVE [None]
  - MOOD SWINGS [None]
